FAERS Safety Report 17088387 (Version 1)
Quarter: 2019Q4

REPORT INFORMATION
  Report Type: Report from Study
  Country: US (occurrence: US)
  Receive Date: 20191128
  Receipt Date: 20191128
  Transmission Date: 20200122
  Serious: Yes (Life-Threatening, Hospitalization)
  Sender: FDA-Public Use
  Company Number: US-SA-2018SA249383

PATIENT
  Age: 55 Year
  Sex: Male

DRUGS (2)
  1. VALACYCLOVIR [Concomitant]
     Active Substance: VALACYCLOVIR HYDROCHLORIDE
     Indication: ANTIVIRAL PROPHYLAXIS
     Dosage: 500 MG, QD
     Route: 065
     Dates: start: 20180810
  2. ALEMTUZUMAB [Suspect]
     Active Substance: ALEMTUZUMAB
     Indication: MULTIPLE SCLEROSIS
     Dosage: 12 MG, QD
     Route: 041
     Dates: start: 20180813, end: 20180817

REACTIONS (9)
  - Pigmentation disorder [Unknown]
  - Pruritus [Recovering/Resolving]
  - Platelet count decreased [Recovered/Resolved]
  - Rash [Recovering/Resolving]
  - Epistaxis [Unknown]
  - Tongue blistering [Unknown]
  - Blister [Recovering/Resolving]
  - Swelling [Recovering/Resolving]
  - Blood blister [Unknown]

NARRATIVE: CASE EVENT DATE: 20180819
